FAERS Safety Report 23752810 (Version 1)
Quarter: 2024Q2

REPORT INFORMATION
  Report Type: Spontaneous
  Country: IT (occurrence: IT)
  Receive Date: 20240417
  Receipt Date: 20240417
  Transmission Date: 20240715
  Serious: No
  Sender: FDA-Public Use
  Company Number: None

PATIENT
  Age: 29 Year
  Sex: Male

DRUGS (6)
  1. RANEXA [Suspect]
     Active Substance: RANOLAZINE
     Indication: Myocardial ischaemia
     Route: 048
     Dates: start: 20210211
  2. IVABRADINA MYLAN [Concomitant]
     Indication: Cardiac failure
     Route: 048
  3. LANSOPRAZOLO SANDOZ [Concomitant]
     Indication: Gastrointestinal disorder
     Route: 048
  4. BISOPROLOL [Concomitant]
     Active Substance: BISOPROLOL\BISOPROLOL FUMARATE
     Indication: Hypertension
     Route: 048
  5. Clopidogrel Mylan Genrics [Concomitant]
     Indication: Myocardial ischaemia
     Route: 048
  6. EZETIMIBE\ROSUVASTATIN ZINC [Concomitant]
     Active Substance: EZETIMIBE\ROSUVASTATIN ZINC
     Indication: Dyslipidaemia
     Route: 048

REACTIONS (2)
  - Constipation [Recovered/Resolved]
  - Product use in unapproved indication [Not Recovered/Not Resolved]

NARRATIVE: CASE EVENT DATE: 20200501
